FAERS Safety Report 10670731 (Version 1)
Quarter: 2014Q4

REPORT INFORMATION
  Report Type: Spontaneous
  Country: CA (occurrence: None)
  Receive Date: 20141219
  Receipt Date: 20141219
  Transmission Date: 20150529
  Serious: Yes (Hospitalization, Disabling)
  Sender: FDA-Public Use
  Company Number: A1072506A

PATIENT
  Age: 27 Year
  Sex: Female

DRUGS (1)
  1. PAROXETINE HYDROCHLORIDE UNKNOWN [Suspect]
     Active Substance: PAROXETINE HYDROCHLORIDE
     Indication: ILL-DEFINED DISORDER
     Route: 048

REACTIONS (5)
  - Dyskinesia [None]
  - Muscle twitching [None]
  - Torticollis [None]
  - Muscle tightness [None]
  - Oropharyngeal spasm [None]
